FAERS Safety Report 17771479 (Version 3)
Quarter: 2020Q3

REPORT INFORMATION
  Report Type: Spontaneous
  Country: US (occurrence: US)
  Receive Date: 20200512
  Receipt Date: 20200909
  Transmission Date: 20201102
  Serious: No
  Sender: FDA-Public Use
  Company Number: US-BIOGEN-2020BI00870621

PATIENT
  Sex: Female

DRUGS (2)
  1. TYSABRI [Suspect]
     Active Substance: NATALIZUMAB
     Indication: MULTIPLE SCLEROSIS
     Route: 065
     Dates: start: 20150224, end: 20191031
  2. TYSABRI [Suspect]
     Active Substance: NATALIZUMAB
     Route: 065
     Dates: start: 20110822, end: 20140918

REACTIONS (5)
  - Therapeutic product effect decreased [Unknown]
  - Multiple sclerosis relapse [Unknown]
  - Drug specific antibody present [Unknown]
  - Drug intolerance [Not Recovered/Not Resolved]
  - Feeling abnormal [Unknown]
